FAERS Safety Report 4887798-3 (Version None)
Quarter: 2006Q1

REPORT INFORMATION
  Report Type: 
  Country: None (occurrence: None)
  Receive Date: 20060123
  Receipt Date: 20060111
  Transmission Date: 20060701
  Serious: Yes (Death)
  Sender: FDA-Public Use
  Company Number: EC-ROCHE-431754

PATIENT
  Age: 64 Year
  Sex: Male
  Weight: 65.2 kg

DRUGS (1)
  1. PEGASYS [Suspect]
     Indication: HEPATITIS C
     Route: 058
     Dates: start: 20050910, end: 20051115

REACTIONS (2)
  - BLOOD CREATININE INCREASED [None]
  - ENCEPHALITIS [None]
